FAERS Safety Report 8455792-1 (Version None)
Quarter: 2012Q2

REPORT INFORMATION
  Report Type: 
  Country: None (occurrence: None)
  Receive Date: 20120621
  Receipt Date: 20120621
  Transmission Date: 20120825
  Serious: Yes (Hospitalization)
  Sender: FDA-Public Use
  Company Number: US-PFIZER INC-2011US-50263

PATIENT
  Age: 58 Year
  Sex: Female

DRUGS (2)
  1. VERAPAMIL HCL [Suspect]
     Dosage: UNK
     Route: 048
  2. INSULIN [Suspect]
     Indication: CARDIOGENIC SHOCK
     Dosage: 80 IU, UNK
     Route: 042

REACTIONS (3)
  - HYPOKALAEMIA [None]
  - OVERDOSE [None]
  - CARDIOGENIC SHOCK [None]
